FAERS Safety Report 6065561-8 (Version None)
Quarter: 2009Q1

REPORT INFORMATION
  Report Type: 
  Country: None (occurrence: None)
  Receive Date: 20090204
  Receipt Date: 20090204
  Transmission Date: 20090719
  Serious: Yes (Hospitalization)
  Sender: FDA-Public Use
  Company Number: NO-B.I. PHARMACEUTICALS,INC./RIDGEFIELD-2009-DE-00374DE

PATIENT
  Sex: Male
  Weight: 50 kg

DRUGS (4)
  1. TIOTROPIUM-BROMIDE [Suspect]
     Indication: CHRONIC OBSTRUCTIVE PULMONARY DISEASE
     Dosage: 18MCG
     Route: 055
     Dates: start: 20081113
  2. PAROXETINE HCL [Concomitant]
     Dosage: 20MG
     Dates: start: 19900101
  3. DIAZEPAM [Concomitant]
     Dosage: VARIABLE
     Dates: start: 19900101
  4. NITRAZEPAM [Concomitant]
     Dosage: VARIABLE
     Dates: start: 19900101

REACTIONS (2)
  - RENAL FAILURE ACUTE [None]
  - URINARY RETENTION [None]
